FAERS Safety Report 26096794 (Version 1)
Quarter: 2025Q4

REPORT INFORMATION
  Report Type: Spontaneous
  Country: EU (occurrence: EU)
  Receive Date: 20251127
  Receipt Date: 20251127
  Transmission Date: 20260118
  Serious: Yes (Hospitalization, Other)
  Sender: AUROBINDO
  Company Number: EU-AFSSAPS-PA2025001065

PATIENT
  Age: 63 Year
  Sex: Female
  Weight: 75 kg

DRUGS (2)
  1. METHOTREXATE [Interacting]
     Active Substance: METHOTREXATE
     Indication: Rheumatoid arthritis
     Dosage: 20 MILLIGRAM, EVERY WEEK
     Dates: start: 20250905
  2. GLICLAZIDE [Interacting]
     Active Substance: GLICLAZIDE
     Indication: Diabetes mellitus
     Dosage: 60 MILLIGRAM, ONCE A DAY
     Dates: start: 20200905

REACTIONS (1)
  - Agranulocytosis [Recovered/Resolved]

NARRATIVE: CASE EVENT DATE: 20251024
